FAERS Safety Report 25756219 (Version 3)
Quarter: 2025Q4

REPORT INFORMATION
  Report Type: Spontaneous
  Country: US (occurrence: None)
  Receive Date: 20250903
  Receipt Date: 20251222
  Transmission Date: 20260118
  Serious: Yes (Hospitalization, Other)
  Sender: UCB
  Company Number: US-UCBSA-2025053506

PATIENT
  Age: 68 Year

DRUGS (1)
  1. RYSTIGGO [Suspect]
     Active Substance: ROZANOLIXIZUMAB-NOLI
     Indication: Myasthenia gravis
     Dosage: 840 MILLIGRAM, WEEKLY (QW)

REACTIONS (4)
  - Myasthenia gravis [Unknown]
  - Infection [Unknown]
  - Plasmapheresis [Unknown]
  - Hospitalisation [Unknown]
